FAERS Safety Report 7565614-9 (Version None)
Quarter: 2011Q2

REPORT INFORMATION
  Report Type: 
  Country: None (occurrence: None)
  Receive Date: 20110623
  Receipt Date: 20110608
  Transmission Date: 20111010
  Serious: Yes (Life-Threatening, Other)
  Sender: FDA-Public Use
  Company Number: PT-JNJFOC-20090607208

PATIENT
  Sex: Male
  Weight: 80 kg

DRUGS (6)
  1. REMICADE [Suspect]
     Route: 042
     Dates: start: 20090616
  2. REMICADE [Suspect]
     Indication: RHEUMATOID ARTHRITIS
     Dosage: STOPPED THERAPY FOR ABOUT A YEAR
     Route: 042
     Dates: start: 20060703
  3. METHOTREXATE [Concomitant]
  4. REMICADE [Suspect]
     Route: 042
     Dates: start: 20090601
  5. CORTICOSTEROIDS [Concomitant]
  6. ANTI-INFLAMMATORY DRUG [Concomitant]

REACTIONS (3)
  - HYPERSENSITIVITY [None]
  - KNEE ARTHROPLASTY [None]
  - INFUSION RELATED REACTION [None]
